FAERS Safety Report 15411829 (Version 1)
Quarter: 2018Q3

REPORT INFORMATION
  Report Type: Spontaneous
  Country: US (occurrence: US)
  Receive Date: 20180921
  Receipt Date: 20180921
  Transmission Date: 20181010
  Serious: No
  Sender: FDA-Public Use
  Company Number: US-RECKITT BENCKISER HEALTHCARE INT LIMITED-RB-87678-2018

PATIENT
  Age: 85 Year
  Sex: Male

DRUGS (2)
  1. MUCINEX MAXIMUM STRENGTH [Suspect]
     Active Substance: GUAIFENESIN
     Indication: PRODUCTIVE COUGH
     Dosage: 1200 MG, BID
     Route: 065
     Dates: start: 20180101, end: 2018
  2. MUCINEX MAXIMUM STRENGTH [Suspect]
     Active Substance: GUAIFENESIN
     Dosage: 1200 MG, SINGLE
     Route: 065
     Dates: start: 20180603, end: 2018

REACTIONS (1)
  - Product use issue [Unknown]
